FAERS Safety Report 11912130 (Version 1)
Quarter: 2016Q1

REPORT INFORMATION
  Report Type: Report from Study
  Country: BR (occurrence: BR)
  Receive Date: 20160112
  Receipt Date: 20160112
  Transmission Date: 20160526
  Serious: Yes (Death, Other)
  Sender: FDA-Public Use
  Company Number: PHHY2016BR002775

PATIENT
  Age: 87 Year
  Sex: Male
  Weight: 63 kg

DRUGS (1)
  1. DIOVAN AMLO FIX [Suspect]
     Active Substance: AMLODIPINE\VALSARTAN
     Indication: HYPERTENSION
     Dosage: VALSARTAN 80 MG AND AMLODIPINE 5 MG, QD
     Route: 048

REACTIONS (4)
  - Arrhythmia [Unknown]
  - Blood potassium decreased [Unknown]
  - Death [Fatal]
  - Leishmaniasis [Unknown]

NARRATIVE: CASE EVENT DATE: 20151026
